FAERS Safety Report 10068765 (Version 1)
Quarter: 2014Q2

REPORT INFORMATION
  Report Type: Spontaneous
  Country: FR (occurrence: FR)
  Receive Date: 20140409
  Receipt Date: 20140409
  Transmission Date: 20141212
  Serious: Yes (Hospitalization)
  Sender: FDA-Public Use
  Company Number: FR-BAYER-2014-048706

PATIENT
  Age: 67 Year
  Sex: Male

DRUGS (1)
  1. NEXAVAR [Suspect]
     Dosage: 2 DF, BID
     Route: 048
     Dates: start: 20140124, end: 20140228

REACTIONS (2)
  - Polyneuropathy [Recovered/Resolved]
  - Disease progression [Recovered/Resolved]
